FAERS Safety Report 9223397 (Version 1)
Quarter: 2013Q2

REPORT INFORMATION
  Report Type: Report from Study
  Country: CZ (occurrence: CZ)
  Receive Date: 20130410
  Receipt Date: 20130410
  Transmission Date: 20140414
  Serious: Yes (Hospitalization)
  Sender: FDA-Public Use
  Company Number: CZ-UCBSA-8039767

PATIENT
  Age: 51 Year
  Sex: Male
  Weight: 103 kg

DRUGS (10)
  1. CDP870 [Suspect]
     Indication: CROHN^S DISEASE
     Dosage: - NR OF DOSES :3
     Route: 058
     Dates: start: 20080708
  2. CDP870 [Suspect]
     Indication: CROHN^S DISEASE
     Dosage: DOSE FREQ.: ONCE MONTHLY
     Route: 058
     Dates: start: 20080819, end: 20081111
  3. CDP870 [Suspect]
     Indication: CROHN^S DISEASE
     Dosage: DOSE FREQ.: ONCE MONTHLY
     Route: 058
     Dates: start: 20081209, end: 20090106
  4. CDP870 [Suspect]
     Indication: CROHN^S DISEASE
     Dosage: DOSE FREQ.: ONCE MONTHLY
     Route: 058
  5. SALOFALK [Concomitant]
     Indication: CROHN^S DISEASE
     Route: 048
     Dates: start: 200706
  6. ZOREM [Concomitant]
     Indication: HYPERTENSION
     Route: 048
     Dates: start: 2005, end: 20081206
  7. NEUROL [Concomitant]
     Indication: DEPRESSION
     Route: 048
     Dates: start: 200709, end: 20081206
  8. NEUROL [Concomitant]
     Indication: DEPRESSION
     Route: 048
     Dates: start: 20081207
  9. SERETIDE [Concomitant]
     Indication: ASTHMA
     Route: 055
     Dates: start: 20080915
  10. VENTOLIN [Concomitant]
     Indication: ASTHMA
     Route: 055
     Dates: start: 20080915

REACTIONS (4)
  - Nephrolithiasis [Recovered/Resolved]
  - Post procedural haemorrhage [Recovered/Resolved]
  - Urinary tract infection [Recovered/Resolved]
  - Ureteric obstruction [Recovered/Resolved]
